FAERS Safety Report 19302237 (Version 2)
Quarter: 2021Q3

REPORT INFORMATION
  Report Type: Report from Study
  Country: BR (occurrence: BR)
  Receive Date: 20210525
  Receipt Date: 20210901
  Transmission Date: 20211014
  Serious: Yes (Hospitalization)
  Sender: FDA-Public Use
  Company Number: NVSC2020BR129594

PATIENT
  Age: 65 Year
  Sex: Female
  Weight: 61 kg

DRUGS (10)
  1. COSENTYX [Suspect]
     Active Substance: SECUKINUMAB
     Dosage: 300 MG
     Route: 065
     Dates: start: 20200116
  2. DEXILANT [Concomitant]
     Active Substance: DEXLANSOPRAZOLE
     Indication: GASTROOESOPHAGEAL REFLUX DISEASE
     Dosage: UNK  (3 MONTHS AGO)
     Route: 065
  3. COSENTYX [Suspect]
     Active Substance: SECUKINUMAB
     Dosage: UNK UNK, QMO
     Route: 065
     Dates: start: 20210126
  4. BROMOPRIDA [Concomitant]
     Indication: GASTROOESOPHAGEAL REFLUX DISEASE
     Dosage: UNK (15?30 MINS BEFORE MEALS)
     Route: 048
     Dates: start: 20210205
  5. COSENTYX [Suspect]
     Active Substance: SECUKINUMAB
     Indication: PSORIASIS
     Dosage: UNK UNK, QW (BEING 5 WEEKS FOLLOWED)
     Route: 058
     Dates: start: 20200116, end: 20200130
  6. COSENTYX [Suspect]
     Active Substance: SECUKINUMAB
     Dosage: UNK
     Route: 065
     Dates: start: 20200206, end: 20200713
  7. COSENTYX [Suspect]
     Active Substance: SECUKINUMAB
     Dosage: UNK
     Route: 065
     Dates: start: 20200126
  8. VITAMIIN C [Concomitant]
     Active Substance: ASCORBIC ACID
     Indication: PRODUCT USED FOR UNKNOWN INDICATION
     Dosage: UNK UNK, Q2W
     Route: 065
  9. MIRTAZAPINE. [Concomitant]
     Active Substance: MIRTAZAPINE
     Indication: INSOMNIA
     Dosage: 15 MG
     Route: 048
     Dates: start: 20210404
  10. DEXILANT [Concomitant]
     Active Substance: DEXLANSOPRAZOLE
     Dosage: 1 DF, QD
     Route: 048
     Dates: start: 20210205

REACTIONS (38)
  - Cough [Unknown]
  - Rhinorrhoea [Recovered/Resolved]
  - Decreased immune responsiveness [Recovered/Resolved]
  - Skin lesion [Unknown]
  - Pain [Recovered/Resolved]
  - COVID-19 [Unknown]
  - Eye pain [Unknown]
  - Psoriasis [Unknown]
  - Rhinitis [Recovered/Resolved]
  - Somnolence [Unknown]
  - Lung disorder [Unknown]
  - Taste disorder [Unknown]
  - Pain [Unknown]
  - Decreased immune responsiveness [Unknown]
  - Headache [Recovering/Resolving]
  - Hypotension [Unknown]
  - Skin lesion [Recovered/Resolved]
  - Aortic aneurysm [Unknown]
  - Respiration abnormal [Unknown]
  - Pyrexia [Unknown]
  - Myalgia [Recovered/Resolved]
  - Nausea [Unknown]
  - Product supply issue [Unknown]
  - Oxygen saturation decreased [Unknown]
  - Parosmia [Unknown]
  - Pain in extremity [Recovering/Resolving]
  - Memory impairment [Unknown]
  - Dizziness [Unknown]
  - Tachycardia [Unknown]
  - Influenza [Recovered/Resolved]
  - Limb injury [Unknown]
  - Sneezing [Recovered/Resolved]
  - Wound [Unknown]
  - Oropharyngeal pain [Unknown]
  - Decreased appetite [Unknown]
  - Rhinitis [Recovered/Resolved]
  - Fatigue [Unknown]
  - Abdominal hernia [Unknown]

NARRATIVE: CASE EVENT DATE: 202001
